FAERS Safety Report 21655661 (Version 5)
Quarter: 2024Q1

REPORT INFORMATION
  Report Type: Report from Study
  Country: US (occurrence: US)
  Receive Date: 20221129
  Receipt Date: 20240222
  Transmission Date: 20240410
  Serious: No
  Sender: FDA-Public Use
  Company Number: US-002147023-NVSC2022US264973

PATIENT
  Age: 10 Year
  Sex: Female

DRUGS (3)
  1. ILARIS [Suspect]
     Active Substance: CANAKINUMAB
     Indication: Cryopyrin associated periodic syndrome
     Dosage: 100 MG, OTHER (EVERY 8 WEEKS), Q 8 WEEKS
     Route: 058
     Dates: start: 201910
  2. ILARIS [Suspect]
     Active Substance: CANAKINUMAB
     Indication: Cold urticaria
     Dosage: UNK
     Route: 065
     Dates: start: 20240212
  3. ILARIS [Suspect]
     Active Substance: CANAKINUMAB
     Indication: Urticaria thermal

REACTIONS (3)
  - Nasopharyngitis [Unknown]
  - Inappropriate schedule of product administration [Unknown]
  - COVID-19 [Unknown]

NARRATIVE: CASE EVENT DATE: 20221101
